FAERS Safety Report 22603969 (Version 1)
Quarter: 2023Q2

REPORT INFORMATION
  Report Type: Spontaneous
  Country: MY (occurrence: MY)
  Receive Date: 20230615
  Receipt Date: 20230615
  Transmission Date: 20230722
  Serious: Yes (Other)
  Sender: FDA-Public Use
  Company Number: MY-002147023-NVSC2023MY136183

PATIENT
  Age: 65 Year
  Sex: Female

DRUGS (1)
  1. GLIVEC [Suspect]
     Active Substance: IMATINIB MESYLATE
     Indication: Chronic myeloid leukaemia
     Dosage: 200 MG, Q12H
     Route: 048

REACTIONS (3)
  - Lip swelling [Recovering/Resolving]
  - Swelling face [Recovering/Resolving]
  - Pancytopenia [Recovering/Resolving]
